FAERS Safety Report 22144234 (Version 1)
Quarter: 2023Q1

REPORT INFORMATION
  Report Type: Spontaneous
  Country: US (occurrence: US)
  Receive Date: 20230328
  Receipt Date: 20230328
  Transmission Date: 20230417
  Serious: Yes (Hospitalization, Other)
  Sender: FDA-Public Use
  Company Number: US-ALEMBIC PHARMACUETICALS LIMITED-2023SCAL000122

PATIENT

DRUGS (1)
  1. BUPROPION HYDROCHLORIDE [Suspect]
     Active Substance: BUPROPION HYDROCHLORIDE
     Indication: Product used for unknown indication
     Dosage: UNK
     Route: 065

REACTIONS (10)
  - Cardiotoxicity [Recovering/Resolving]
  - Cardiogenic shock [Recovering/Resolving]
  - Bundle branch block left [Recovering/Resolving]
  - Ventricular hypokinesia [Recovering/Resolving]
  - Ejection fraction decreased [Recovering/Resolving]
  - Arrhythmia [Recovered/Resolved]
  - Unresponsive to stimuli [Recovering/Resolving]
  - Seizure [Recovered/Resolved]
  - Pulse absent [Recovering/Resolving]
  - Overdose [Unknown]
